FAERS Safety Report 8988359 (Version 1)
Quarter: 2012Q4

REPORT INFORMATION
  Report Type: Spontaneous
  Country: JP (occurrence: None)
  Receive Date: 20121218
  Receipt Date: 20121218
  Transmission Date: 20130627
  Serious: No
  Sender: FDA-Public Use
  Company Number: TCI2012A06692

PATIENT
  Age: 7 Decade
  Sex: Male

DRUGS (1)
  1. TAKEPRON [Suspect]
     Route: 048
     Dates: start: 201210, end: 201211

REACTIONS (1)
  - Vision blurred [None]
